FAERS Safety Report 7544267-X (Version None)
Quarter: 2011Q2

REPORT INFORMATION
  Report Type: 
  Country: None (occurrence: None)
  Receive Date: 20110613
  Receipt Date: 20070918
  Transmission Date: 20111010
  Serious: Yes (Other)
  Sender: FDA-Public Use
  Company Number: PHHO2007JP14559

PATIENT
  Sex: Male
  Weight: 67 kg

DRUGS (8)
  1. LIPITOR [Concomitant]
     Indication: HYPERCHOLESTEROLAEMIA
     Dosage: UNK
  2. DIOVAN [Suspect]
     Dosage: NO TREATMENT
     Dates: start: 20050712
  3. DOGMATYL [Concomitant]
     Indication: PSYCHOSOMATIC DISEASE
     Dosage: UNK
  4. ALLOPURINOL [Concomitant]
     Indication: HYPERURICAEMIA
     Dosage: UNK
  5. AMLODIPINE [Concomitant]
     Indication: HYPERTENSION
     Dosage: UNK
  6. KAKKON-TO [Concomitant]
     Indication: CERVICOBRACHIAL SYNDROME
     Dosage: UNK
  7. DIOVAN [Suspect]
     Indication: HYPERTENSION
     Dosage: 80 MG, QD
     Route: 048
     Dates: start: 20030516, end: 20050711
  8. TRICHLORMETHIAZIDE [Concomitant]
     Indication: HYPERTENSION
     Dosage: UNK

REACTIONS (1)
  - LYMPHOMA [None]
